FAERS Safety Report 6765550-1 (Version None)
Quarter: 2010Q2

REPORT INFORMATION
  Report Type: 
  Country: None (occurrence: None)
  Receive Date: 20100610
  Receipt Date: 20100610
  Transmission Date: 20101027
  Serious: No
  Sender: FDA-Public Use
  Company Number: None

PATIENT
  Sex: Male
  Weight: 96.6162 kg

DRUGS (1)
  1. SULFAMETHOXAZOLE AND TRIMETHOPRIM [Suspect]
     Indication: SKIN INFECTION
     Dosage: 800MG/160MG
     Dates: start: 20100527, end: 20100601

REACTIONS (3)
  - DRUG INTOLERANCE [None]
  - GENITAL ERYTHEMA [None]
  - PENILE BLISTER [None]
